FAERS Safety Report 13410493 (Version 4)
Quarter: 2022Q1

REPORT INFORMATION
  Report Type: Spontaneous
  Country: US (occurrence: US)
  Receive Date: 20170406
  Receipt Date: 20220302
  Transmission Date: 20220423
  Serious: No
  Sender: FDA-Public Use
  Company Number: US-JNJFOC-20170227349

PATIENT
  Sex: Male

DRUGS (2)
  1. RISPERDAL [Suspect]
     Active Substance: RISPERIDONE
     Indication: Aggression
     Route: 048
     Dates: start: 2003
  2. RISPERDAL [Suspect]
     Active Substance: RISPERIDONE
     Dosage: 0.5 MG AT BEDTIME AND WAS INCREASED TO 0.5 MG TWICE A DAY
     Route: 048
     Dates: start: 20031010, end: 20031104

REACTIONS (2)
  - Emotional disorder [Unknown]
  - Gynaecomastia [Unknown]
